FAERS Safety Report 8338032-3 (Version None)
Quarter: 2012Q2

REPORT INFORMATION
  Report Type: 
  Country: None (occurrence: None)
  Receive Date: 20120504
  Receipt Date: 20120423
  Transmission Date: 20120825
  Serious: Yes (Other)
  Sender: FDA-Public Use
  Company Number: SE-CELGENEUS-150-21660-12041385

PATIENT
  Age: 75 Year
  Sex: Female

DRUGS (2)
  1. CARBOPLATIN [Suspect]
     Route: 041
     Dates: start: 20120124, end: 20120124
  2. ABRAXANE [Suspect]
     Route: 041
     Dates: start: 20120124, end: 20120124

REACTIONS (4)
  - ANGIOEDEMA [None]
  - URTICARIA [None]
  - LIP SWELLING [None]
  - PHARYNGEAL OEDEMA [None]
